FAERS Safety Report 9602269 (Version 1)
Quarter: 2013Q4

REPORT INFORMATION
  Report Type: Report from Study
  Country: LB (occurrence: LB)
  Receive Date: 20131007
  Receipt Date: 20131007
  Transmission Date: 20140711
  Serious: Yes (Death, Hospitalization)
  Sender: FDA-Public Use
  Company Number: LB-SA-2013SA096743

PATIENT
  Sex: 0

DRUGS (10)
  1. LANTUS SOLOSTAR [Suspect]
     Indication: DIABETES MELLITUS
     Dosage: DOSE:20 UNIT(S)
     Route: 058
     Dates: start: 2012
  2. SOLOSTAR [Concomitant]
     Indication: DEVICE THERAPY
  3. GLIQUIDONE [Concomitant]
     Indication: DIABETES MELLITUS
  4. GLUCOPHAGE [Concomitant]
     Indication: DIABETES MELLITUS
     Route: 048
  5. ACTOS [Concomitant]
     Indication: DIABETES MELLITUS
     Route: 048
  6. ODRIC [Concomitant]
     Route: 048
  7. VESSEL DUE F [Concomitant]
     Route: 048
  8. NEBILET [Concomitant]
     Route: 048
  9. ASPIRIN [Concomitant]
     Route: 048
  10. PRAXILENE [Concomitant]
     Route: 048

REACTIONS (2)
  - General physical health deterioration [Fatal]
  - Infection [Unknown]
